FAERS Safety Report 26184763 (Version 1)
Quarter: 2025Q4

REPORT INFORMATION
  Report Type: Spontaneous
  Country: US (occurrence: US)
  Receive Date: 20251222
  Receipt Date: 20251222
  Transmission Date: 20260118
  Serious: No
  Sender: BAUSCH AND LOMB
  Company Number: US-BAUSCHBL-2025BNL033795

PATIENT
  Age: 83 Year
  Sex: Female

DRUGS (3)
  1. DEXAMETHASONE\NEOMYCIN\POLYMYXIN B SULFATE [Suspect]
     Active Substance: DEXAMETHASONE\NEOMYCIN\POLYMYXIN B SULFATE
     Indication: Vision blurred
     Dosage: ONE DROP IN EACH EYE, THREE TIMES DAILY
     Route: 047
     Dates: start: 20251209
  2. MURO 128 [Suspect]
     Active Substance: SODIUM CHLORIDE
     Indication: Vision blurred
     Dosage: ONE DROP IN EACH EYE AT NIGHT
     Route: 047
     Dates: start: 20251209
  3. ZADITOR [Concomitant]
     Active Substance: KETOTIFEN FUMARATE
     Indication: Vision blurred
     Dosage: ONE DROP IN EACH EYE, TWICE DAILY
     Route: 047

REACTIONS (2)
  - Pruritus [Recovered/Resolved]
  - Ill-defined disorder [Recovered/Resolved]
